FAERS Safety Report 24024273 (Version 2)
Quarter: 2024Q3

REPORT INFORMATION
  Report Type: Report from Study
  Country: AR (occurrence: AR)
  Receive Date: 20240627
  Receipt Date: 20240710
  Transmission Date: 20241017
  Serious: No
  Sender: ROCHE
  Company Number: AR-ROCHE-3472526

PATIENT
  Age: 34 Year
  Sex: Male
  Weight: 64.0 kg

DRUGS (6)
  1. ALECTINIB [Suspect]
     Active Substance: ALECTINIB
     Indication: Non-small cell lung cancer metastatic
     Dosage: ON 14/APR/2023, HE RECEIVED MOST RECENT DOSE OF STUDY DRUG PRIOR TO AE AND ENDED ON THE SAME DAY.
     Route: 048
     Dates: start: 20230414, end: 20230602
  2. ACETAMINOPHEN [Concomitant]
     Active Substance: ACETAMINOPHEN
     Indication: Analgesic therapy
     Route: 048
     Dates: start: 20230321
  3. PREGABALIN [Concomitant]
     Active Substance: PREGABALIN
     Indication: Analgesic therapy
     Route: 048
     Dates: start: 20230323
  4. BUPRENORPHINE [Concomitant]
     Active Substance: BUPRENORPHINE
     Indication: Analgesic therapy
     Route: 062
     Dates: start: 20230323
  5. LACTULOSE [Concomitant]
     Active Substance: LACTULOSE
     Route: 048
     Dates: start: 20230323
  6. METOCLOPRAMIDE [Concomitant]
     Active Substance: METOCLOPRAMIDE
     Dosage: 25 OTHER
     Route: 048
     Dates: start: 20230323

REACTIONS (2)
  - Medication error [Unknown]
  - No adverse event [Unknown]

NARRATIVE: CASE EVENT DATE: 20230414
